FAERS Safety Report 9591438 (Version 1)
Quarter: 2013Q4

REPORT INFORMATION
  Report Type: Spontaneous
  Country: US (occurrence: US)
  Receive Date: 20131003
  Receipt Date: 20131003
  Transmission Date: 20140711
  Serious: No
  Sender: FDA-Public Use
  Company Number: US-AMGEN-USASP2012080182

PATIENT
  Age: 43 Year
  Sex: Male
  Weight: 77.1 kg

DRUGS (4)
  1. ENBREL [Suspect]
     Indication: PSORIASIS
     Dosage: 50 MG, 2 TIMES/WK
     Route: 058
  2. SIMVASTATIN [Concomitant]
     Dosage: 5 MG, UNK
     Route: 048
  3. PROPECIA [Concomitant]
     Dosage: 1 MG, UNK
     Route: 048
  4. IMITREX                            /01044801/ [Concomitant]
     Dosage: 25 MG, UNK
     Route: 048

REACTIONS (1)
  - Fungal infection [Unknown]
